FAERS Safety Report 7778470-0 (Version None)
Quarter: 2011Q3

REPORT INFORMATION
  Report Type: 
  Country: None (occurrence: None)
  Receive Date: 20110926
  Receipt Date: 20110916
  Transmission Date: 20111222
  Serious: Yes (Hospitalization)
  Sender: FDA-Public Use
  Company Number: TW-GLAXOSMITHKLINE-B0748979A

PATIENT
  Age: 48 Year
  Sex: Female

DRUGS (1)
  1. AMFEBUTAMONE [Suspect]
     Route: 065

REACTIONS (5)
  - DYSKINESIA [None]
  - BRUXISM [None]
  - DRUG WITHDRAWAL SYNDROME [None]
  - MUSCLE TWITCHING [None]
  - TARDIVE DYSKINESIA [None]
